FAERS Safety Report 8009959-7 (Version None)
Quarter: 2011Q4

REPORT INFORMATION
  Report Type: 
  Country: None (occurrence: None)
  Receive Date: 20111228
  Receipt Date: 20111218
  Transmission Date: 20120403
  Serious: Yes (Hospitalization)
  Sender: FDA-Public Use
  Company Number: PHHY2011MX110457

PATIENT
  Sex: Female

DRUGS (3)
  1. ROTIGOTINE [Concomitant]
     Indication: TREMOR
     Dosage: 1 PATCH PER DAY
  2. DIOVAN HCT [Suspect]
     Indication: HYPERTENSION
     Dosage: 2 TABLETS (160/12.5 MG) PER DAY
     Dates: start: 20070101
  3. DIOVAN HCT [Suspect]
     Dosage: 1 TABLETS (160/12.5 MG) PER DAY
     Dates: start: 20111211

REACTIONS (3)
  - SYNCOPE [None]
  - WEIGHT DECREASED [None]
  - EMBOLISM [None]
